FAERS Safety Report 23751062 (Version 1)
Quarter: 2024Q2

REPORT INFORMATION
  Report Type: Spontaneous
  Country: US (occurrence: US)
  Receive Date: 20240417
  Receipt Date: 20240417
  Transmission Date: 20240717
  Serious: No
  Sender: FDA-Public Use
  Company Number: US-JNJFOC-20240368598

PATIENT
  Sex: Female

DRUGS (1)
  1. ZYRTEC [Suspect]
     Active Substance: CETIRIZINE HYDROCHLORIDE
     Indication: Productive cough
     Dosage: 1 TABLET ONCE DAILY
     Route: 065
     Dates: start: 20240320

REACTIONS (1)
  - Off label use [Unknown]
